FAERS Safety Report 21216492 (Version 7)
Quarter: 2023Q2

REPORT INFORMATION
  Report Type: Report from Study
  Country: CA (occurrence: CA)
  Receive Date: 20220816
  Receipt Date: 20230516
  Transmission Date: 20230721
  Serious: Yes (Other)
  Sender: FDA-Public Use
  Company Number: CA-TAKEDA-2022TUS055951

PATIENT
  Age: 74 Year
  Sex: Male

DRUGS (6)
  1. VEDOLIZUMAB [Suspect]
     Active Substance: VEDOLIZUMAB
     Indication: Colitis ulcerative
     Dosage: 300 MILLIGRAM
     Route: 042
     Dates: start: 20200825
  2. VEDOLIZUMAB [Suspect]
     Active Substance: VEDOLIZUMAB
     Dosage: 300 MILLIGRAM
     Route: 042
  3. VEDOLIZUMAB [Suspect]
     Active Substance: VEDOLIZUMAB
     Dosage: 300 MILLIGRAM, Q4WEEKS
     Route: 042
     Dates: start: 20221110, end: 20230426
  4. PREDNISONE [Concomitant]
     Active Substance: PREDNISONE
     Dosage: UNK
  5. PENTASA [Concomitant]
     Active Substance: MESALAMINE
     Dosage: UNK UNK, BID
  6. PENTASA [Concomitant]
     Active Substance: MESALAMINE
     Dosage: 2 GRAM, QD

REACTIONS (4)
  - Colitis ulcerative [Unknown]
  - Drug level decreased [Unknown]
  - Off label use [Unknown]
  - Dizziness [Unknown]

NARRATIVE: CASE EVENT DATE: 20221005
